FAERS Safety Report 10281158 (Version 1)
Quarter: 2014Q3

REPORT INFORMATION
  Report Type: Spontaneous
  Country: US (occurrence: None)
  Receive Date: 20140702
  Receipt Date: 20140702
  Transmission Date: 20150326
  Serious: Yes (Other)
  Sender: FDA-Public Use
  Company Number: None

PATIENT
  Age: 89 Year
  Sex: Female
  Weight: 50.8 kg

DRUGS (8)
  1. CACITRATE [Concomitant]
  2. METOPROLOL [Concomitant]
     Active Substance: METOPROLOL
  3. CA CITRATE WITH VITAMIN D [Concomitant]
  4. HCTZ [Concomitant]
     Active Substance: HYDROCHLOROTHIAZIDE
  5. ANTI HYPERTENSION MEDS [Concomitant]
  6. LOVASTIN [Concomitant]
  7. PROLIA [Suspect]
     Active Substance: DENOSUMAB
     Indication: SENILE OSTEOPOROSIS
     Dates: start: 20140430
  8. MULTIVITAMIN [Concomitant]
     Active Substance: VITAMINS

REACTIONS (2)
  - Skin disorder [None]
  - Erythema [None]

NARRATIVE: CASE EVENT DATE: 20140430
